FAERS Safety Report 8764126 (Version 2)
Quarter: 2012Q4

REPORT INFORMATION
  Report Type: 
  Country: US (occurrence: US)
  Receive Date: 20120831
  Receipt Date: 20121018
  Transmission Date: 20130627
  Serious: No
  Sender: FDA-Public Use
  Company Number: US-009507513-1208USA005763

PATIENT
  Sex: Male
  Weight: 95.69 kg

DRUGS (7)
  1. PEGINTRON [Suspect]
     Indication: HEPATITIS C
     Dosage: 150 mcg/0.5 ml, 150 mcg qw
     Route: 058
     Dates: start: 20120519
  2. RIBASPHERE [Concomitant]
     Route: 048
  3. NEUPOGEN [Concomitant]
     Dosage: Inj 300/0.5
  4. ASPIRIN [Concomitant]
     Dosage: tab 81 mg
     Route: 048
  5. CALCIUM (UNSPECIFIED) [Concomitant]
     Dosage: 500 tab
     Route: 048
  6. MAGNESIUM (UNSPECIFIED) [Concomitant]
     Dosage: cap 400 mg
     Route: 048
  7. GENGRAF [Concomitant]
     Dosage: cap 100 mg
     Route: 048

REACTIONS (3)
  - Device failure [Unknown]
  - Drug dose omission [Unknown]
  - Product quality issue [Unknown]
